FAERS Safety Report 17893847 (Version 7)
Quarter: 2021Q3

REPORT INFORMATION
  Report Type: Spontaneous
  Country: DE (occurrence: DE)
  Receive Date: 20200615
  Receipt Date: 20210707
  Transmission Date: 20211014
  Serious: Yes (Other)
  Sender: FDA-Public Use
  Company Number: DE-AUROBINDO-AUR-APL-2020-028706

PATIENT
  Age: 70 Year
  Sex: Female
  Weight: 75.6 kg

DRUGS (32)
  1. VALSARTAN FILM?COATED TABLET [Suspect]
     Active Substance: VALSARTAN
     Dosage: 80 MILLIGRAM, TWO TIMES A DAY (160 MG ONCE A DAY)
     Route: 065
     Dates: start: 20150421
  2. VALSARTAN HEXAL [Suspect]
     Active Substance: VALSARTAN
     Indication: PRODUCT USED FOR UNKNOWN INDICATION
     Dosage: 80 MILLIGRAM, (80 MG/ 12.5 MG)
     Route: 065
     Dates: start: 201209
  3. VALSARTAN HEXAL [Suspect]
     Active Substance: VALSARTAN
     Dosage: 80 MILLIGRAM, TWO TIMES A DAY, (80 MG/ 12.5 MG)
     Route: 065
     Dates: start: 20140714
  4. VALSARTAN HEXAL [Suspect]
     Active Substance: VALSARTAN
     Dosage: 80 MILLIGRAM, ONCE A DAY, (HALF 80 MG)
     Route: 065
     Dates: start: 20170406, end: 20180704
  5. OLMESARTAN [Concomitant]
     Active Substance: OLMESARTAN
     Indication: PRODUCT USED FOR UNKNOWN INDICATION
     Dosage: UNK
     Route: 065
  6. VALSARTAN. [Concomitant]
     Active Substance: VALSARTAN
     Indication: PRODUCT USED FOR UNKNOWN INDICATION
     Dosage: 80 MILLIGRAM (HALF A TABLET)
     Route: 065
     Dates: start: 20151128
  7. VALSARTAN FILM?COATED TABLET [Suspect]
     Active Substance: VALSARTAN
     Dosage: 80 MILLIGRAM, ONCE A DAY, (80MG/12.5 MG)
     Route: 065
     Dates: start: 20150421
  8. VALSARTAN HEXAL [Suspect]
     Active Substance: VALSARTAN
     Dosage: 320 MILLIGRAM, TWO TIMES A DAY, , (80 MG/ 12.5 MG)
     Route: 065
     Dates: start: 20140714
  9. VALSARTAN HEXAL [Suspect]
     Active Substance: VALSARTAN
     Dosage: 80 MILLIGRAM, ONCE A DAY, (HALF 80 MG)
     Route: 065
     Dates: start: 20180705, end: 20180715
  10. CANDESARTAN. [Concomitant]
     Active Substance: CANDESARTAN
     Indication: PRODUCT USED FOR UNKNOWN INDICATION
     Dosage: UNK
     Route: 065
  11. METHOTREXATE. [Concomitant]
     Active Substance: METHOTREXATE
     Indication: PRODUCT USED FOR UNKNOWN INDICATION
     Dosage: UNK
     Route: 065
  12. METRONIDAZOLE. [Concomitant]
     Active Substance: METRONIDAZOLE
     Indication: PRODUCT USED FOR UNKNOWN INDICATION
     Dosage: UNK
     Route: 065
  13. VALSARTAN FILM?COATED TABLET [Suspect]
     Active Substance: VALSARTAN
     Dosage: 80 MILLIGRAM, ONCE A DAY (HALF 80 MG)
     Route: 065
     Dates: start: 20180705, end: 20180715
  14. VALSARTAN FILM?COATED TABLET [Suspect]
     Active Substance: VALSARTAN
     Dosage: 80 MILLIGRAM (80 MG/ 12.5 MG)
     Route: 065
     Dates: start: 201209
  15. BERLOSIN [Concomitant]
     Active Substance: METAMIZOLE
     Indication: PRODUCT USED FOR UNKNOWN INDICATION
     Dosage: UNK
     Route: 065
  16. VENORUTON INTENS [Concomitant]
     Indication: PRODUCT USED FOR UNKNOWN INDICATION
     Dosage: UNK
     Route: 065
     Dates: start: 1997
  17. ACETYLSALICYLIC ACID [Suspect]
     Active Substance: ASPIRIN
     Indication: PRODUCT USED FOR UNKNOWN INDICATION
     Dosage: UNK
     Route: 065
  18. ACETYLSALICYLIC ACID;ALUMINIUM GLYCINATE;MAGNESIUM CARBONATE [Suspect]
     Active Substance: ASPIRIN\DIHYDROXYALUMINUM AMINOACETATE ANHYDROUS\MAGNESIUM CARBONATE
     Indication: PRODUCT USED FOR UNKNOWN INDICATION
     Dosage: UNK
     Route: 065
  19. BACTOFLOX [Concomitant]
     Indication: PRODUCT USED FOR UNKNOWN INDICATION
     Dosage: UNK
     Route: 065
  20. CANDESARTAN CILEXETIL;HYDROCHLOROTHIAZIDE [Concomitant]
     Active Substance: CANDESARTAN CILEXETIL\HYDROCHLOROTHIAZIDE
     Indication: PRODUCT USED FOR UNKNOWN INDICATION
     Dosage: UNK
     Route: 065
  21. VALSACOR COMP [Concomitant]
     Active Substance: HYDROCHLOROTHIAZIDE\VALSARTAN
     Indication: PRODUCT USED FOR UNKNOWN INDICATION
     Dosage: UNK
     Route: 065
     Dates: start: 20151128, end: 201807
  22. VALSARTAN FILM?COATED TABLET [Suspect]
     Active Substance: VALSARTAN
     Dosage: 80 MILLIGRAM, ONCE A DAY (HALF 80 MG)
     Route: 065
     Dates: start: 20170406, end: 20180704
  23. VALSARTAN HEXAL [Suspect]
     Active Substance: VALSARTAN
     Dosage: 80 MILLIGRAM, ONCE A DAY, (80 MG/ 12.5 MG)
     Route: 065
     Dates: start: 20140127, end: 20140713
  24. MAGNEESIUM [Concomitant]
     Active Substance: MAGNESIUM
     Indication: PRODUCT USED FOR UNKNOWN INDICATION
     Dosage: UNK
     Route: 065
     Dates: start: 1997
  25. VALSARTAN FILM?COATED TABLET [Suspect]
     Active Substance: VALSARTAN
     Dosage: 160 MILLIGRAM, ONCE A DAY (80 MG, BID (80 MG/ 12.5 MG) )
     Route: 065
     Dates: start: 20140714
  26. DICLOFENAC SODIUM;ORPHENADRINE [Suspect]
     Active Substance: DICLOFENAC\ORPHENADRINE
     Indication: PRODUCT USED FOR UNKNOWN INDICATION
     Dosage: UNK
     Route: 065
  27. VALSARTAN HEXAL [Suspect]
     Active Substance: VALSARTAN
     Dosage: 80 MILLIGRAM, ONCE A DAY,  (80 MG/ 12.5 MG)
     Route: 065
     Dates: start: 20180705, end: 20180715
  28. DICLOFENAC [Suspect]
     Active Substance: DICLOFENAC
     Indication: PRODUCT USED FOR UNKNOWN INDICATION
     Dosage: UNK
     Route: 065
  29. VALSARTAN FILM?COATED TABLET [Suspect]
     Active Substance: VALSARTAN
     Indication: PRODUCT USED FOR UNKNOWN INDICATION
     Dosage: 80 MG, QD (80MG/12.5 MG)
     Route: 065
     Dates: start: 20140127, end: 20140713
  30. BETAVERT [Concomitant]
     Active Substance: BETAHISTINE
     Indication: PRODUCT USED FOR UNKNOWN INDICATION
     Dosage: 24 MILLIGRAM
     Route: 065
     Dates: start: 20180119, end: 20180131
  31. CEFUROXIME. [Concomitant]
     Active Substance: CEFUROXIME
     Indication: PRODUCT USED FOR UNKNOWN INDICATION
     Dosage: UNK
     Route: 065
  32. CIPROFLOXACIN. [Concomitant]
     Active Substance: CIPROFLOXACIN
     Indication: PRODUCT USED FOR UNKNOWN INDICATION
     Dosage: UNK
     Route: 065

REACTIONS (35)
  - Stenosis [Unknown]
  - Granulomatosis with polyangiitis [Unknown]
  - Angina pectoris [Recovered/Resolved]
  - Dizziness [Recovered/Resolved]
  - Tinnitus [Unknown]
  - Abdominal pain lower [Unknown]
  - Apathy [Unknown]
  - Syncope [Unknown]
  - Pain in extremity [Unknown]
  - Blood pressure increased [Recovered/Resolved]
  - Somatic symptom disorder [Unknown]
  - Fatigue [Unknown]
  - Osteoarthritis [Unknown]
  - Pharyngitis [Unknown]
  - Oedema peripheral [Unknown]
  - Gastrointestinal disorder [Recovered/Resolved]
  - Emotional distress [Unknown]
  - Bone pain [Unknown]
  - Constipation [Unknown]
  - Sleep disorder [Unknown]
  - Ligament injury [Unknown]
  - Coronary artery disease [Unknown]
  - Poor quality sleep [Recovered/Resolved]
  - Irritable bowel syndrome [Unknown]
  - Arthralgia [Unknown]
  - Sinus tachycardia [Unknown]
  - Colitis [Unknown]
  - Synovial cyst [Unknown]
  - Loss of consciousness [Unknown]
  - Diverticulitis [Unknown]
  - Diverticulum intestinal [Unknown]
  - Anxiety [Recovered/Resolved]
  - Headache [Unknown]
  - Merycism [Unknown]
  - Drug hypersensitivity [Unknown]

NARRATIVE: CASE EVENT DATE: 200104
